FAERS Safety Report 10508481 (Version 1)
Quarter: 2014Q4

REPORT INFORMATION
  Report Type: Spontaneous
  Country: US (occurrence: US)
  Receive Date: 20141009
  Receipt Date: 20141009
  Transmission Date: 20150528
  Serious: No
  Sender: FDA-Public Use
  Company Number: US-ASTELLAS-2014US012713

PATIENT
  Age: 84 Year
  Sex: Male

DRUGS (1)
  1. MYRBETRIQ [Suspect]
     Active Substance: MIRABEGRON
     Indication: URINARY INCONTINENCE
     Route: 065

REACTIONS (5)
  - Headache [Unknown]
  - Intentional product use issue [Unknown]
  - Haematochezia [Unknown]
  - Faeces hard [Unknown]
  - Constipation [Unknown]

NARRATIVE: CASE EVENT DATE: 2014
